FAERS Safety Report 9207725 (Version 9)
Quarter: 2014Q2

REPORT INFORMATION
  Report Type: Report from Study
  Country: DE (occurrence: DE)
  Receive Date: 20130403
  Receipt Date: 20140623
  Transmission Date: 20141212
  Serious: Yes (Hospitalization)
  Sender: FDA-Public Use
  Company Number: DE-ROCHE-1206281

PATIENT
  Sex: Male

DRUGS (53)
  1. RITUXIMAB [Suspect]
     Indication: B-CELL LYMPHOMA
     Dosage: DATE OF LAST DOSE PRIOR TO SAE: 06/JUN/2013.
     Route: 042
     Dates: start: 20130311, end: 20130311
  2. RITUXIMAB [Suspect]
     Route: 042
     Dates: start: 20130402, end: 20130402
  3. RITUXIMAB [Suspect]
     Dosage: CYCLE 3
     Route: 042
     Dates: start: 20130514, end: 20130514
  4. RITUXIMAB [Suspect]
     Dosage: CYCLE 6
     Route: 042
     Dates: start: 20130604, end: 20130604
  5. RITUXIMAB [Suspect]
     Route: 042
     Dates: start: 20130813
  6. RITUXIMAB [Suspect]
     Dosage: CYCLE 1
     Route: 042
  7. PEGFILGRASTIM [Suspect]
     Indication: B-CELL LYMPHOMA
     Route: 058
     Dates: start: 20130315, end: 20130315
  8. PEGFILGRASTIM [Suspect]
     Route: 058
     Dates: start: 20130406, end: 20130406
  9. PEGFILGRASTIM [Suspect]
     Route: 058
     Dates: start: 20130606, end: 20130606
  10. PEGFILGRASTIM [Suspect]
     Route: 058
     Dates: start: 20130816
  11. CYCLOPHOSPHAMIDE [Suspect]
     Indication: B-CELL LYMPHOMA
     Dosage: DATE OF LAST DOSE PRIOR TO SAE: 05/JUN/2013
     Route: 042
     Dates: start: 20130312, end: 20130312
  12. CYCLOPHOSPHAMIDE [Suspect]
     Route: 042
     Dates: start: 20130403, end: 20130403
  13. CYCLOPHOSPHAMIDE [Suspect]
     Route: 042
     Dates: start: 20130515, end: 20130515
  14. CYCLOPHOSPHAMIDE [Suspect]
     Route: 042
     Dates: start: 20130605, end: 20130605
  15. CYCLOPHOSPHAMIDE [Suspect]
     Route: 042
     Dates: start: 20130814
  16. CYCLOPHOSPHAMIDE [Suspect]
     Dosage: CYCLE 1
     Route: 042
  17. DOXORUBICINE [Suspect]
     Indication: B-CELL LYMPHOMA
     Dosage: DATE OF LAST DOSE PRIOR TO SAE: 05/JUN/2013
     Route: 042
     Dates: start: 20130312, end: 20130312
  18. DOXORUBICINE [Suspect]
     Route: 042
     Dates: start: 20130403, end: 20130403
  19. DOXORUBICINE [Suspect]
     Route: 042
     Dates: start: 20130515, end: 20130515
  20. DOXORUBICINE [Suspect]
     Route: 042
     Dates: start: 20130605, end: 20130605
  21. DOXORUBICINE [Suspect]
     Route: 042
     Dates: start: 20130814
  22. DOXORUBICINE [Suspect]
     Dosage: CYCLE 1
     Route: 042
  23. VINCRISTINE [Suspect]
     Indication: B-CELL LYMPHOMA
     Dosage: DATE OF LAST DOSE PRIOR TO SAE: 05/JUN/2013
     Route: 042
     Dates: start: 20130312, end: 20130312
  24. VINCRISTINE [Suspect]
     Route: 042
     Dates: start: 20130403, end: 20130403
  25. VINCRISTINE [Suspect]
     Route: 042
     Dates: start: 20130515, end: 20130515
  26. VINCRISTINE [Suspect]
     Route: 042
     Dates: start: 20130605, end: 20130605
  27. VINCRISTINE [Suspect]
     Route: 042
     Dates: start: 20130814
  28. VINCRISTINE [Suspect]
     Dosage: CYCLE 1
     Route: 042
  29. PREDNISONE [Suspect]
     Indication: B-CELL LYMPHOMA
     Dosage: DATE OF LAST DOSE PRIOR TO SAE: 05/JUN/2013
     Route: 065
     Dates: start: 20130313, end: 20130317
  30. PREDNISONE [Suspect]
     Dosage: D1-5:100MG, D6-8:50 MG, D8-11:25MG
     Route: 048
     Dates: start: 20130403, end: 20130414
  31. PREDNISONE [Suspect]
     Route: 048
     Dates: start: 20130605, end: 20130609
  32. PREDNISONE [Suspect]
     Route: 048
     Dates: start: 20130808, end: 20130814
  33. PREDNISONE [Suspect]
     Dosage: CYCLE 1, FREQUENCY : DAY 1 TO 5 FOR 5 DAYS.
     Route: 048
  34. VALACICLOVIR [Concomitant]
     Indication: INFECTION PROPHYLAXIS
     Route: 048
  35. VALACICLOVIR [Concomitant]
     Route: 048
  36. SULFAMETHOXAZOLE/TRIMETHOPRIM [Concomitant]
     Indication: INFECTION PROPHYLAXIS
     Route: 048
  37. SULFAMETHOXAZOLE/TRIMETHOPRIM [Concomitant]
     Route: 048
     Dates: start: 20130225
  38. LEVOFLOXACIN [Concomitant]
     Indication: INFECTION PROPHYLAXIS
     Route: 048
     Dates: start: 20130317
  39. AMPHOTERICIN B [Concomitant]
     Indication: INFECTION PROPHYLAXIS
     Dosage: 1 PIPETTE
     Route: 048
     Dates: start: 20130318, end: 20130319
  40. MIRTAZAPINE [Concomitant]
     Indication: DEPRESSION
     Route: 048
  41. LEVOTHYROXINE SODIUM [Concomitant]
     Indication: HYPOTHYROIDISM
     Route: 048
  42. LEVOTHYROXINE SODIUM [Concomitant]
     Route: 048
     Dates: start: 20130225
  43. PANTOPRAZOL NATRIUM [Concomitant]
     Indication: PROPHYLAXIS AGAINST GASTROINTESTINAL ULCER
     Route: 048
     Dates: start: 20130225
  44. METFORMIN [Concomitant]
     Indication: DIABETES MELLITUS
     Dosage: 1G ONE TIMES A DAY
     Route: 065
  45. HYDROCHLOROTHIAZIDE/RAMIPRIL [Concomitant]
     Indication: HYPERTENSION
     Route: 048
  46. METAMIZOLE SODIUM [Concomitant]
     Indication: PAIN
     Route: 048
     Dates: start: 20130730
  47. DALTEPARINNATRIUM [Concomitant]
     Indication: PROPHYLAXIS
     Route: 058
     Dates: start: 201307
  48. HYDROCORTISONE [Concomitant]
     Indication: ADRENAL INSUFFICIENCY
     Route: 048
     Dates: start: 20130730
  49. HYDROCORTISONE [Concomitant]
     Route: 048
     Dates: start: 20130906
  50. FLUDROCORTISONE [Concomitant]
     Indication: ASTHMA
     Route: 048
  51. THEOPHYLLIN [Concomitant]
     Indication: ASTHMA
     Route: 048
  52. THEOPHYLLIN [Concomitant]
     Route: 065
  53. LEVOTHYROXIN NATRIUM [Concomitant]
     Route: 048
     Dates: start: 20130730

REACTIONS (5)
  - Pneumothorax [Recovered/Resolved]
  - Febrile neutropenia [Recovered/Resolved]
  - Neutropenia [Recovered/Resolved]
  - Febrile neutropenia [Recovered/Resolved]
  - Febrile infection [Recovered/Resolved]
